FAERS Safety Report 24141385 (Version 1)
Quarter: 2024Q3

REPORT INFORMATION
  Report Type: Spontaneous
  Country: JP (occurrence: JP)
  Receive Date: 20240726
  Receipt Date: 20240726
  Transmission Date: 20241016
  Serious: Yes (Death)
  Sender: PFIZER
  Company Number: JP-PFIZER INC-PV202400095637

PATIENT
  Age: 9 Decade
  Sex: Female
  Weight: 39.5 kg

DRUGS (1)
  1. TRIAZOLAM [Suspect]
     Active Substance: TRIAZOLAM
     Indication: Suicidal ideation
     Dosage: ORALLY TOOK ABOUT 150 TABLETS
     Route: 048

REACTIONS (3)
  - Suicidal behaviour [Fatal]
  - Intentional overdose [Fatal]
  - Toxicity to various agents [Fatal]
